FAERS Safety Report 9777079 (Version 1)
Quarter: 2013Q4

REPORT INFORMATION
  Report Type: Spontaneous
  Country: IT (occurrence: IT)
  Receive Date: 20131221
  Receipt Date: 20131221
  Transmission Date: 20140711
  Serious: Yes (Death, Hospitalization)
  Sender: FDA-Public Use
  Company Number: IT-SUN PHARMACEUTICAL INDUSTRIES LTD-2013SUN05235

PATIENT
  Age: 77 Year
  Sex: Male

DRUGS (5)
  1. OXALIPLATIN [Suspect]
     Indication: COLON CANCER METASTATIC
     Route: 065
  2. FLUOROURACIL [Concomitant]
     Indication: COLON CANCER METASTATIC
  3. LEUCOVORIN [Concomitant]
     Indication: COLON CANCER METASTATIC
  4. IRINOTECAN [Concomitant]
     Indication: COLON CANCER METASTATIC
  5. CAPECITABINE [Concomitant]
     Indication: COLON CANCER METASTATIC
     Dosage: UNK
     Dates: start: 201211

REACTIONS (1)
  - Thrombotic thrombocytopenic purpura [Fatal]
